FAERS Safety Report 19021603 (Version 1)
Quarter: 2021Q1

REPORT INFORMATION
  Report Type: Spontaneous
  Country: DE (occurrence: DE)
  Receive Date: 20210317
  Receipt Date: 20210317
  Transmission Date: 20210420
  Serious: Yes (Life-Threatening, Hospitalization)
  Sender: FDA-Public Use
  Company Number: DE-TEVA-2021-DE-1890256

PATIENT
  Age: 83 Year
  Sex: Female
  Weight: 56 kg

DRUGS (6)
  1. RAMIPRIL. [Suspect]
     Active Substance: RAMIPRIL
     Dosage: 5 MILLIGRAM DAILY; 1?0?0?0
     Route: 065
  2. OMEPRAZOL [Concomitant]
     Active Substance: OMEPRAZOLE
     Dosage: 40 MILLIGRAM DAILY; 1?0?0?0
  3. ANAGRELID [Concomitant]
     Dosage: 1 MILLIGRAM DAILY; 1?0?0?0
  4. SALBUTAMOL [Concomitant]
     Active Substance: ALBUTEROL
     Dosage: IF NECESSARY
  5. BRIMONIDIN/TIMOLOL [Concomitant]
     Dosage: UNIT DOSE: 0.3|5 MG/ML, 0?0?1?0
  6. BRIMONIDIN [Concomitant]
     Dosage: 4 MILLIGRAM/MILLILITERS DAILY; 1?0?1?0

REACTIONS (5)
  - General physical health deterioration [Unknown]
  - Localised infection [Unknown]
  - Fall [Unknown]
  - Pyrexia [Unknown]
  - Dehydration [Unknown]
